FAERS Safety Report 23673626 (Version 1)
Quarter: 2024Q1

REPORT INFORMATION
  Report Type: Spontaneous
  Country: CN (occurrence: CN)
  Receive Date: 20240326
  Receipt Date: 20240326
  Transmission Date: 20240409
  Serious: Yes (Other)
  Sender: FDA-Public Use
  Company Number: CN-PFIZER INC-PV202400039458

PATIENT
  Age: 4 Month
  Sex: Male
  Weight: 7 kg

DRUGS (1)
  1. ZITHROMAX [Suspect]
     Active Substance: AZITHROMYCIN DIHYDRATE
     Indication: Anti-infective therapy
     Dosage: 0.07 G, 1X/DAY
     Route: 048
     Dates: start: 20240310, end: 20240313

REACTIONS (2)
  - Infantile diarrhoea [Recovering/Resolving]
  - Off label use [Unknown]

NARRATIVE: CASE EVENT DATE: 20240310
